FAERS Safety Report 24044865 (Version 1)
Quarter: 2024Q3

REPORT INFORMATION
  Report Type: Spontaneous
  Country: US (occurrence: None)
  Receive Date: 20240702
  Receipt Date: 20240702
  Transmission Date: 20241016
  Serious: Yes (Other)
  Sender: Public
  Company Number: None

PATIENT
  Age: 61 Year
  Sex: Female

DRUGS (11)
  1. AMBRISENTAN [Suspect]
     Active Substance: AMBRISENTAN
     Indication: Pulmonary arterial hypertension
     Dosage: FREQUENCY : DAILY;?
     Route: 048
     Dates: start: 20220208
  2. TADALAFIL [Concomitant]
  3. SELEXIPAG [Concomitant]
     Active Substance: SELEXIPAG
  4. FUROSEMIDE [Concomitant]
  5. POTASSIUM CHLORIDE [Concomitant]
     Active Substance: POTASSIUM CHLORIDE
  6. NORTRIPTYLINE [Concomitant]
     Active Substance: NORTRIPTYLINE
  7. CLONAZEPAM [Concomitant]
  8. excedrin [Concomitant]
  9. ESTRADIOL TRANSDERMAL SYSTEM [Concomitant]
     Active Substance: ESTRADIOL
  10. medrocyprogesterene [Concomitant]
  11. FAMOTIDINE [Concomitant]

REACTIONS (3)
  - Neck pain [None]
  - Ear pain [None]
  - Hypoaesthesia [None]

NARRATIVE: CASE EVENT DATE: 20240531
